FAERS Safety Report 11350527 (Version 1)
Quarter: 2015Q3

REPORT INFORMATION
  Report Type: Spontaneous
  Country: FR (occurrence: FR)
  Receive Date: 20150807
  Receipt Date: 20150807
  Transmission Date: 20151125
  Serious: Yes (Life-Threatening, Hospitalization, Disabling, Other)
  Sender: FDA-Public Use
  Company Number: FR-ELI_LILLY_AND_COMPANY-FR201507011022

PATIENT
  Age: 57 Year
  Sex: Female

DRUGS (8)
  1. LOXAPAC                            /00401801/ [Suspect]
     Active Substance: LOXAPINE SUCCINATE
     Indication: MOOD ALTERED
     Dosage: 30 MG, TID
     Route: 048
     Dates: start: 2000, end: 20150325
  2. LEPTICUR [Concomitant]
     Active Substance: TROPATEPINE HYDROCHLORIDE
     Dosage: 10 MG, UNK
  3. BISOCE [Concomitant]
     Active Substance: BISOPROLOL
  4. VALIUM [Concomitant]
     Active Substance: DIAZEPAM
  5. TERALITHE [Suspect]
     Active Substance: LITHIUM CARBONATE
     Indication: MOOD ALTERED
     Dosage: UNK
     Route: 048
     Dates: start: 20150317, end: 20150325
  6. AMLOR [Concomitant]
     Active Substance: AMLODIPINE BESYLATE
  7. ZYPREXA [Suspect]
     Active Substance: OLANZAPINE
     Indication: MOOD ALTERED
     Dosage: UNK
     Route: 048
     Dates: start: 2000, end: 20150325
  8. DUPHALAC [Concomitant]
     Active Substance: LACTULOSE

REACTIONS (2)
  - Neuroleptic malignant syndrome [Recovered/Resolved]
  - Fall [Recovered/Resolved]

NARRATIVE: CASE EVENT DATE: 20150325
